FAERS Safety Report 14418607 (Version 3)
Quarter: 2018Q1

REPORT INFORMATION
  Report Type: Report from Study
  Country: AR (occurrence: AR)
  Receive Date: 20180122
  Receipt Date: 20180327
  Transmission Date: 20180509
  Serious: Yes (Hospitalization, Other)
  Sender: FDA-Public Use
  Company Number: PHHY2018AR005326

PATIENT
  Sex: Female

DRUGS (1)
  1. ENTRESTO [Suspect]
     Active Substance: SACUBITRIL\VALSARTAN
     Indication: CARDIAC FAILURE CHRONIC
     Dosage: 50 MG, QD
     Route: 065
     Dates: start: 201610

REACTIONS (11)
  - Cardiac disorder [Not Recovered/Not Resolved]
  - Cardiac complication associated with device [Not Recovered/Not Resolved]
  - Dyspnoea [Recovered/Resolved]
  - Vocal cord polyp [Not Recovered/Not Resolved]
  - Aphonia [Not Recovered/Not Resolved]
  - Musculoskeletal discomfort [Not Recovered/Not Resolved]
  - Atrial fibrillation [Recovering/Resolving]
  - Pericardial effusion [Unknown]
  - Inappropriate schedule of drug administration [Not Recovered/Not Resolved]
  - Acute pulmonary oedema [Recovering/Resolving]
  - Drug prescribing error [Unknown]
